FAERS Safety Report 18434610 (Version 1)
Quarter: 2020Q4

REPORT INFORMATION
  Report Type: Spontaneous
  Country: JP (occurrence: JP)
  Receive Date: 20201028
  Receipt Date: 20201028
  Transmission Date: 20210114
  Serious: Yes (Other)
  Sender: FDA-Public Use
  Company Number: JP-SAKK-2020SA300647AA

PATIENT

DRUGS (3)
  1. DUPIXENT [Suspect]
     Active Substance: DUPILUMAB
     Indication: DERMATITIS ATOPIC
     Dosage: DOSING INTERVAL: 3 TO 4 WEEKS
     Route: 058
     Dates: start: 2020
  2. DUPIXENT [Suspect]
     Active Substance: DUPILUMAB
     Indication: ASTHMA
     Dosage: TWO SYRINGES
     Route: 058
     Dates: start: 201909
  3. DUPIXENT [Suspect]
     Active Substance: DUPILUMAB
     Dosage: UNK, QOW
     Route: 058
     Dates: start: 2019

REACTIONS (12)
  - Conjunctivitis allergic [Unknown]
  - Eye pruritus [Not Recovered/Not Resolved]
  - Nephropathy [Unknown]
  - Cataract [Unknown]
  - Genital herpes simplex [Recovered/Resolved]
  - Inappropriate schedule of product administration [Unknown]
  - Abdominal pain [Unknown]
  - Lung disorder [Unknown]
  - Blood glucose fluctuation [Unknown]
  - Lymphadenopathy [Unknown]
  - Pancreatic disorder [Unknown]
  - Injection site pruritus [Unknown]

NARRATIVE: CASE EVENT DATE: 2020
